FAERS Safety Report 14200011 (Version 1)
Quarter: 2017Q4

REPORT INFORMATION
  Report Type: Report from Study
  Country: US (occurrence: US)
  Receive Date: 20171117
  Receipt Date: 20171117
  Transmission Date: 20180321
  Serious: Yes (Death)
  Sender: FDA-Public Use
  Company Number: US-TORRENT-00004084

PATIENT
  Age: 67 Year
  Sex: Male

DRUGS (2)
  1. HELIUM. [Suspect]
     Active Substance: HELIUM
     Indication: PRODUCT USED FOR UNKNOWN INDICATION
     Dosage: INGESTION PLUS    INHALATION/NASAL
  2. ZOLPIDEM TARTRATE. [Suspect]
     Active Substance: ZOLPIDEM TARTRATE
     Indication: PRODUCT USED FOR UNKNOWN INDICATION
     Dosage: INGESTION PLUS    INHALATION/NASAL

REACTIONS (2)
  - Completed suicide [Fatal]
  - Toxicity to various agents [Fatal]
